FAERS Safety Report 16787300 (Version 1)
Quarter: 2019Q3

REPORT INFORMATION
  Report Type: Spontaneous
  Country: IT (occurrence: IT)
  Receive Date: 20190909
  Receipt Date: 20190909
  Transmission Date: 20191005
  Serious: Yes (Other)
  Sender: FDA-Public Use
  Company Number: IT-JNJFOC-20190901733

PATIENT

DRUGS (1)
  1. IMBRUVICA [Suspect]
     Active Substance: IBRUTINIB
     Indication: NERVOUS SYSTEM DISORDER
     Route: 048

REACTIONS (3)
  - Off label use [Unknown]
  - Myelitis transverse [Recovering/Resolving]
  - Product use in unapproved indication [Unknown]
